FAERS Safety Report 5728088-6 (Version None)
Quarter: 2008Q2

REPORT INFORMATION
  Report Type: 
  Country: None (occurrence: None)
  Receive Date: 20080505
  Receipt Date: 20080428
  Transmission Date: 20081010
  Serious: Yes (Other)
  Sender: FDA-Public Use
  Company Number: HQWYE877306OCT05

PATIENT
  Sex: Female

DRUGS (6)
  1. PREMPRO [Suspect]
     Indication: HORMONE REPLACEMENT THERAPY
  2. NORETHINDRONE ACETATE [Suspect]
  3. DEPO-PROVERA [Suspect]
  4. EVISTA [Suspect]
  5. PREMARIN [Suspect]
  6. ESTRACE [Suspect]

REACTIONS (6)
  - BREAST CANCER [None]
  - CARDIAC DISORDER [None]
  - CARDIOVASCULAR DISORDER [None]
  - CEREBROVASCULAR ACCIDENT [None]
  - DEEP VEIN THROMBOSIS [None]
  - OVARIAN CANCER [None]
